FAERS Safety Report 6234682-9 (Version None)
Quarter: 2009Q2

REPORT INFORMATION
  Report Type: 
  Country: None (occurrence: None)
  Receive Date: 20090618
  Receipt Date: 20090212
  Transmission Date: 20091009
  Serious: No
  Sender: FDA-Public Use
  Company Number: US-BAYER-200910598BCC

PATIENT
  Age: 37 Year
  Sex: Female
  Weight: 181 kg

DRUGS (2)
  1. ALEVE [Suspect]
     Indication: ARTHRALGIA
     Dosage: TOTAL DAILY DOSE: 660 MG  UNIT DOSE: 220 MG
     Dates: start: 20090202, end: 20090211
  2. ALEVE [Suspect]
     Dosage: TOTAL DAILY DOSE: 440 MG  UNIT DOSE: 220 MG
     Dates: start: 20090212

REACTIONS (1)
  - ARTHRALGIA [None]
